FAERS Safety Report 7237947-7 (Version None)
Quarter: 2011Q1

REPORT INFORMATION
  Report Type: 
  Country: None (occurrence: None)
  Receive Date: 20110121
  Receipt Date: 20110114
  Transmission Date: 20110831
  Serious: Yes (Other)
  Sender: FDA-Public Use
  Company Number: US-PFIZER INC-2011010295

PATIENT
  Sex: Male
  Weight: 85.3 kg

DRUGS (21)
  1. CHANTIX [Suspect]
     Indication: SMOKING CESSATION THERAPY
     Dosage: 0.5 MG, 1X/DAY
     Route: 048
     Dates: start: 20110112
  2. DEPAKOTE [Suspect]
     Dosage: UNK
     Route: 048
  3. TRICOR [Concomitant]
     Indication: BLOOD TRIGLYCERIDES ABNORMAL
  4. MESNEX [Concomitant]
     Dosage: 50 UG, UNK
  5. CLONIDINE [Concomitant]
     Indication: OESOPHAGEAL SPASM
  6. VICODIN [Concomitant]
     Dosage: UNK
     Route: 048
  7. VYTORIN [Concomitant]
     Indication: BLOOD CHOLESTEROL ABNORMAL
     Dosage: 10/20 MG, 1X/DAY
     Route: 048
  8. VYTORIN [Concomitant]
     Indication: BLOOD TRIGLYCERIDES ABNORMAL
  9. TRICOR [Concomitant]
     Indication: BLOOD CHOLESTEROL ABNORMAL
     Dosage: 145 MG, 1X/DAY
     Route: 048
  10. PERCOCET [Concomitant]
     Indication: SURGERY
     Dosage: 20/450 MG, 3X/DAY
     Route: 048
  11. SYMBICORT [Concomitant]
     Indication: DYSPNOEA
     Dosage: UNK
  12. GEODON [Concomitant]
     Indication: BIPOLAR DISORDER
     Dosage: 80 MG, 1X/DAY
     Route: 048
  13. NEXIUM [Concomitant]
     Indication: DYSPEPSIA
     Dosage: 40 MG, 1X/DAY
     Route: 048
  14. METOPROLOL [Concomitant]
     Indication: CARDIAC MURMUR
     Dosage: 12.5 MG, 1X/DAY
     Route: 048
  15. MARIJUANA [Concomitant]
     Dosage: UNK
  16. SPIRIVA [Concomitant]
     Indication: DYSPNOEA
     Dosage: UNK
  17. COMBIVENT [Concomitant]
     Indication: DYSPNOEA
     Dosage: UNK
     Route: 048
  18. HYDROCHLOROTHIAZIDE [Concomitant]
     Indication: BLOOD PRESSURE ABNORMAL
     Dosage: 25 MG, 1X/DAY
     Route: 048
  19. CLONIDINE [Concomitant]
     Indication: PAIN
     Dosage: 0.1 MG, 3X/DAY
     Route: 048
  20. POTASSIUM CHLORIDE [Concomitant]
     Indication: BLOOD POTASSIUM DECREASED
     Dosage: 20 MG, UNK
  21. ACETYLSALICYLIC ACID [Concomitant]
     Dosage: 225 MG, 1X/DAY
     Route: 048

REACTIONS (2)
  - SOMNOLENCE [None]
  - DIPLOPIA [None]
